FAERS Safety Report 13331807 (Version 1)
Quarter: 2017Q1

REPORT INFORMATION
  Report Type: Spontaneous
  Country: US (occurrence: US)
  Receive Date: 20170314
  Receipt Date: 20170314
  Transmission Date: 20170428
  Serious: No
  Sender: FDA-Public Use
  Company Number: US-JNJFOC-20170128357

PATIENT
  Age: 5 Month
  Sex: Male
  Weight: 8.16 kg

DRUGS (1)
  1. INFANTS TYLENOL [Suspect]
     Active Substance: ACETAMINOPHEN
     Indication: TEETHING
     Dosage: AS NEEDED
     Route: 048
     Dates: start: 20170129, end: 20170129

REACTIONS (2)
  - Burning sensation [Recovered/Resolved]
  - Vomiting [Recovered/Resolved]

NARRATIVE: CASE EVENT DATE: 20170129
